FAERS Safety Report 16774654 (Version 1)
Quarter: 2019Q3

REPORT INFORMATION
  Report Type: Spontaneous
  Country: US (occurrence: US)
  Receive Date: 20190905
  Receipt Date: 20190905
  Transmission Date: 20191005
  Serious: No
  Sender: FDA-Public Use
  Company Number: US-ELI_LILLY_AND_COMPANY-US201908003683

PATIENT
  Sex: Female

DRUGS (6)
  1. PRAMOXINE [Concomitant]
     Active Substance: PRAMOXINE
     Indication: PRURITUS
  2. CLOBETASOL [Concomitant]
     Active Substance: CLOBETASOL
     Indication: RASH
  3. TALTZ [Suspect]
     Active Substance: IXEKIZUMAB
     Indication: PSORIASIS
     Dosage: 160 MG, DAILY
     Route: 058
     Dates: start: 20190725, end: 20190725
  4. PRAMOXINE [Concomitant]
     Active Substance: PRAMOXINE
     Indication: RASH
  5. CLOBETASOL [Concomitant]
     Active Substance: CLOBETASOL
     Indication: PRURITUS
  6. TALTZ [Suspect]
     Active Substance: IXEKIZUMAB
     Indication: PSORIATIC ARTHROPATHY

REACTIONS (2)
  - Drug hypersensitivity [Not Recovered/Not Resolved]
  - Injection site pain [Recovered/Resolved]

NARRATIVE: CASE EVENT DATE: 20190725
